FAERS Safety Report 25423587 (Version 1)
Quarter: 2025Q2

REPORT INFORMATION
  Report Type: Spontaneous
  Country: CA (occurrence: CA)
  Receive Date: 20250611
  Receipt Date: 20250611
  Transmission Date: 20250717
  Serious: Yes (Other)
  Sender: Haleon PLC
  Company Number: CA-HALEON-2246410

PATIENT
  Age: 10 Year
  Sex: Female

DRUGS (1)
  1. IBUPROFEN [Suspect]
     Active Substance: IBUPROFEN
     Indication: Drug provocation test

REACTIONS (2)
  - Anaphylactic reaction [Unknown]
  - Off label use [Unknown]
